FAERS Safety Report 12372722 (Version 2)
Quarter: 2020Q4

REPORT INFORMATION
  Report Type: Report from Study
  Country: US (occurrence: US)
  Receive Date: 20160516
  Receipt Date: 20201030
  Transmission Date: 20210113
  Serious: Yes (Hospitalization)
  Sender: FDA-Public Use
  Company Number: US-ROCHE-1754920

PATIENT
  Age: 33 Year
  Sex: Female
  Weight: 52.3 kg

DRUGS (8)
  1. TRASTUZUMAB. [Suspect]
     Active Substance: TRASTUZUMAB
     Indication: BREAST CANCER
     Dosage: CYCLE 1, OVER 90 MIN ON DAY 1, LOADING DOSE
     Route: 042
     Dates: start: 20160302
  2. PERTUZUMAB. [Suspect]
     Active Substance: PERTUZUMAB
     Dosage: CYCLE 2: OVER 30-60 MIN ON DAY 1; MAINTENENCE DOSE: MOST RECENT DOSE WAS RECEIVED ON 23/MAR/2016
     Route: 042
  3. TRASTUZUMAB. [Suspect]
     Active Substance: TRASTUZUMAB
     Dosage: CYCLE 2; OVER 30-60 MIN ON DAY 1, DOSE REDUCED ON 23/MAR/2016; MAINTENANCE DOSE
     Route: 042
  4. PERTUZUMAB. [Suspect]
     Active Substance: PERTUZUMAB
     Indication: BREAST CANCER
     Dosage: CYCLE 1: OVER 60 MIN ON DAY 1; LOADING DOSE
     Route: 042
     Dates: start: 20160302
  5. CARBOPLATIN. [Suspect]
     Active Substance: CARBOPLATIN
     Indication: BREAST CANCER
     Dosage: CYCLE 1: AUC=6 MG/ML/MIN IV OVER 30-60 MIN ON DAY 1; MOST RECENT DOSE WAS ADMINISTERED ON 23/MAR/201
     Route: 042
     Dates: start: 20160302
  6. CARBOPLATIN. [Suspect]
     Active Substance: CARBOPLATIN
     Dosage: CYCLE 2: AUC=6 MG/ML/MIN IV OVER 30-60 MIN?FORM OF ADMIN 600 MG
     Route: 042
  7. DOCETAXEL. [Suspect]
     Active Substance: DOCETAXEL
     Indication: BREAST CANCER
     Dosage: CYCLE 1: OVER 60 MIN ON DAY 1?FORM OF ADMIN 92 MG
     Route: 042
     Dates: start: 20160302
  8. DOCETAXEL. [Suspect]
     Active Substance: DOCETAXEL
     Dosage: CYCLE 2; OVER 60 MIN ON DAY 1; MOST RECENT DOSE WAS ADMINISTERED ON 23/MAR/2016?FORM OF ADMIN 92 MG
     Route: 042

REACTIONS (2)
  - Acute kidney injury [Recovered/Resolved]
  - Enterocolitis infectious [Recovered/Resolved]

NARRATIVE: CASE EVENT DATE: 20160330
